FAERS Safety Report 4644776-7 (Version None)
Quarter: 2005Q2

REPORT INFORMATION
  Report Type: 
  Country: None (occurrence: None)
  Receive Date: 20050426
  Receipt Date: 20050411
  Transmission Date: 20051028
  Serious: Yes (Hospitalization)
  Sender: FDA-Public Use
  Company Number: FR-JNJFOC-20050405151

PATIENT
  Age: 75 Year
  Sex: Male

DRUGS (5)
  1. IXPRIM [Suspect]
     Indication: HAEMORRHOIDS
     Route: 049
  2. KETOPROFEN [Concomitant]
     Indication: HAEMORRHOIDS
     Route: 049
  3. DEROXAT [Concomitant]
     Indication: DEPRESSION
     Route: 049
  4. EUPANTOL [Concomitant]
     Indication: HAEMORRHOIDS
     Route: 049
  5. DEPAMIDE [Concomitant]
     Indication: DEPRESSION
     Route: 049

REACTIONS (4)
  - INTESTINAL OBSTRUCTION [None]
  - RENAL FAILURE ACUTE [None]
  - SEROTONIN SYNDROME [None]
  - URINARY RETENTION [None]
